FAERS Safety Report 24814074 (Version 1)
Quarter: 2025Q1

REPORT INFORMATION
  Report Type: Spontaneous
  Country: US (occurrence: US)
  Receive Date: 20250107
  Receipt Date: 20250107
  Transmission Date: 20250409
  Serious: Yes (Other)
  Sender: JOHNSON AND JOHNSON
  Company Number: US-BAYER-2025A000998

PATIENT
  Age: 66 Year
  Sex: Female

DRUGS (2)
  1. XARELTO [Suspect]
     Active Substance: RIVAROXABAN
     Indication: Product used for unknown indication
  2. APIXABAN [Concomitant]
     Active Substance: APIXABAN
     Indication: Product used for unknown indication

REACTIONS (1)
  - Drug-induced liver injury [Recovering/Resolving]
